FAERS Safety Report 23332126 (Version 1)
Quarter: 2023Q4

REPORT INFORMATION
  Report Type: Spontaneous
  Country: US (occurrence: None)
  Receive Date: 20231222
  Receipt Date: 20231222
  Transmission Date: 20240110
  Serious: No
  Sender: FDA-Public Use
  Company Number: None

PATIENT

DRUGS (2)
  1. POTASSIUM CHLORIDE [Suspect]
     Active Substance: POTASSIUM CHLORIDE
     Dosage: OTHER STRENGTH : 20 MEQ/50 ML;?
     Route: 042
  2. POTASSIUM CHLORIDE [Suspect]
     Active Substance: POTASSIUM CHLORIDE
     Dosage: OTHER STRENGTH : 10 MEQ/100 ML ;?
     Route: 042

REACTIONS (2)
  - Product label confusion [None]
  - Product packaging confusion [None]
